FAERS Safety Report 19452429 (Version 1)
Quarter: 2021Q2

REPORT INFORMATION
  Report Type: Spontaneous
  Country: US (occurrence: US)
  Receive Date: 20210623
  Receipt Date: 20210623
  Transmission Date: 20210717
  Serious: Yes (Hospitalization)
  Sender: FDA-Public Use
  Company Number: None

PATIENT
  Sex: Female

DRUGS (6)
  1. TALTZ [Suspect]
     Active Substance: IXEKIZUMAB
     Indication: PSORIASIS
     Route: 058
     Dates: start: 20210330
  2. CARVEDILOL TAB 12.5MG [Concomitant]
     Dates: start: 20210419
  3. OMEPRAZOLE CAP 40MG [Concomitant]
     Active Substance: OMEPRAZOLE
     Dates: start: 20210511
  4. FOLIC ACID TAB 1MG [Concomitant]
     Dates: start: 20210511
  5. ATORVASTATIN TAB 10MG [Concomitant]
     Dates: start: 20210512
  6. GABAOENTIN CAP 300MG [Concomitant]
     Dates: start: 20210415

REACTIONS (2)
  - Therapy interrupted [None]
  - Osteomyelitis [None]
